FAERS Safety Report 25441680 (Version 1)
Quarter: 2025Q2

REPORT INFORMATION
  Report Type: Other
  Country: PL (occurrence: PL)
  Receive Date: 20250616
  Receipt Date: 20250616
  Transmission Date: 20250717
  Serious: Yes (Disabling, Other)
  Sender: BRECKENRIDGE PHARMACEUTICAL, INC.
  Company Number: PL-Breckenridge Pharmaceutical, Inc.-2178800

PATIENT
  Age: 87 Year
  Sex: Male

DRUGS (1)
  1. ACETAZOLAMIDE [Suspect]
     Active Substance: ACETAZOLAMIDE
     Indication: Cystoid macular oedema

REACTIONS (1)
  - Choroidal detachment [Recovered/Resolved]
